FAERS Safety Report 8849165 (Version 2)
Quarter: 2012Q4

REPORT INFORMATION
  Report Type: 
  Country: ES (occurrence: ES)
  Receive Date: 20121019
  Receipt Date: 20121219
  Transmission Date: 20130627
  Serious: Yes (Other)
  Sender: FDA-Public Use
  Company Number: PHHY2012ES090825

PATIENT
  Age: 47 Year
  Sex: Female

DRUGS (2)
  1. CICLOSPORIN [Suspect]
     Dosage: 300 mg, per day
  2. METFORMIN [Concomitant]
     Indication: DIABETES MELLITUS

REACTIONS (2)
  - Drug intolerance [Unknown]
  - Arthritis [Unknown]
